FAERS Safety Report 23564250 (Version 1)
Quarter: 2024Q1

REPORT INFORMATION
  Report Type: Spontaneous
  Country: US (occurrence: US)
  Receive Date: 20240226
  Receipt Date: 20240226
  Transmission Date: 20240410
  Serious: No
  Sender: FDA-Public Use
  Company Number: US-BAUSCHBL-2024BNL001968

PATIENT
  Age: 77 Year
  Sex: Female
  Weight: 65.77 kg

DRUGS (2)
  1. ALAWAY [Suspect]
     Active Substance: KETOTIFEN FUMARATE
     Indication: Eye pruritus
     Dosage: STARTED USING ALAWAY ABOUT 10 YEARS AGO
     Route: 065
  2. ALAWAY [Suspect]
     Active Substance: KETOTIFEN FUMARATE
     Indication: Eye allergy
     Route: 065
     Dates: start: 20240210

REACTIONS (6)
  - Eye swelling [Unknown]
  - Swelling face [Unknown]
  - Erythema [Unknown]
  - Hypertension [Unknown]
  - Hypergammaglobulinaemia benign monoclonal [Unknown]
  - Product quality issue [Unknown]

NARRATIVE: CASE EVENT DATE: 20240211
